FAERS Safety Report 15602143 (Version 2)
Quarter: 2018Q4

REPORT INFORMATION
  Report Type: Spontaneous
  Country: US (occurrence: US)
  Receive Date: 20181109
  Receipt Date: 20181213
  Transmission Date: 20190205
  Serious: Yes (Other)
  Sender: FDA-Public Use
  Company Number: US-PFIZER INC-2018458973

PATIENT
  Age: 64 Year
  Sex: Female
  Weight: 123 kg

DRUGS (1)
  1. XELJANZ XR [Suspect]
     Active Substance: TOFACITINIB CITRATE
     Indication: RHEUMATOID ARTHRITIS
     Dosage: 11 MG, UNK

REACTIONS (5)
  - Cardiac failure congestive [Unknown]
  - Malaise [Unknown]
  - Arthralgia [Unknown]
  - Oedema peripheral [Unknown]
  - Fatigue [Unknown]
